FAERS Safety Report 7738547-2 (Version None)
Quarter: 2011Q3

REPORT INFORMATION
  Report Type: 
  Country: None (occurrence: None)
  Receive Date: 20110908
  Receipt Date: 20110830
  Transmission Date: 20111222
  Serious: Yes (Other)
  Sender: FDA-Public Use
  Company Number: CH-ASTRAZENECA-2011SE52128

PATIENT
  Age: 50 Year
  Sex: Male
  Weight: 70 kg

DRUGS (3)
  1. CRESTOR [Suspect]
     Route: 048
     Dates: start: 20100101, end: 20110601
  2. ATORVASTATIN CALCIUM [Suspect]
     Route: 048
     Dates: start: 20030101, end: 20100101
  3. EZETIMIBE [Suspect]
     Route: 048
     Dates: start: 20040101, end: 20110601

REACTIONS (2)
  - ERECTILE DYSFUNCTION [None]
  - POLYNEUROPATHY [None]
